FAERS Safety Report 17838969 (Version 1)
Quarter: 2020Q2

REPORT INFORMATION
  Report Type: Spontaneous
  Country: US (occurrence: US)
  Receive Date: 20200529
  Receipt Date: 20200529
  Transmission Date: 20200714
  Serious: Yes (Other)
  Sender: FDA-Public Use
  Company Number: US-DRREDDYS-USA/USA/20/0123503

PATIENT
  Age: 42 Year
  Sex: Male

DRUGS (8)
  1. ISOTRETINOIN NOT OTHERWISE SPECIFIED [Suspect]
     Active Substance: ISOTRETINOIN
     Indication: LICHEN PLANOPILARIS
     Route: 048
  2. TRIAMCINOLONE [Concomitant]
     Active Substance: TRIAMCINOLONE
     Indication: LICHEN PLANOPILARIS
     Dosage: 5 MG/ML EVERY 6 TO 8 WEEKS
     Route: 026
  3. ISOTRETINOIN NOT OTHERWISE SPECIFIED [Suspect]
     Active Substance: ISOTRETINOIN
     Indication: LICHEN PLANOPILARIS
  4. TACROLIMUS. [Concomitant]
     Active Substance: TACROLIMUS
     Indication: LICHEN PLANOPILARIS
  5. TACROLIMUS. [Concomitant]
     Active Substance: TACROLIMUS
     Indication: LICHEN PLANOPILARIS
     Route: 065
  6. FINASTERIDE. [Suspect]
     Active Substance: FINASTERIDE
     Indication: LICHEN PLANOPILARIS
     Route: 048
  7. TRIAMCINOLONE [Concomitant]
     Active Substance: TRIAMCINOLONE
     Indication: LICHEN PLANOPILARIS
  8. FINASTERIDE. [Suspect]
     Active Substance: FINASTERIDE
     Indication: LICHEN PLANOPILARIS

REACTIONS (3)
  - Lip dry [Unknown]
  - Sexual dysfunction [Unknown]
  - Dry skin [Unknown]
